FAERS Safety Report 6516109-2 (Version None)
Quarter: 2009Q4

REPORT INFORMATION
  Report Type: 
  Country: None (occurrence: None)
  Receive Date: 20091223
  Receipt Date: 20091217
  Transmission Date: 20100525
  Serious: Yes (Hospitalization, Other)
  Sender: FDA-Public Use
  Company Number: JP-JNJFOC-20091100096

PATIENT
  Sex: Male

DRUGS (6)
  1. ITRIZOLE [Suspect]
     Indication: ONYCHOMYCOSIS
     Route: 048
     Dates: start: 20091014
  2. ITRIZOLE [Suspect]
     Route: 048
     Dates: start: 20091014
  3. CEFCAPENE PIVOXIL HYDROCHLORIDE [Concomitant]
     Route: 048
  4. LOXOPROFEN SODIUM [Concomitant]
     Route: 048
  5. REBAMIPIDE [Concomitant]
     Route: 048
  6. GENTAMICIN SULFATE [Concomitant]
     Route: 065

REACTIONS (3)
  - ANAPHYLACTIC SHOCK [None]
  - DRUG ERUPTION [None]
  - PYREXIA [None]
